FAERS Safety Report 23040824 (Version 1)
Quarter: 2023Q4

REPORT INFORMATION
  Report Type: Spontaneous
  Country: US (occurrence: US)
  Receive Date: 20231006
  Receipt Date: 20231006
  Transmission Date: 20240109
  Serious: No
  Sender: FDA-Public Use
  Company Number: US-JUBILANT CADISTA PHARMACEUTICALS INC.-2023JUB00166

PATIENT
  Sex: Female

DRUGS (3)
  1. PREDNISONE [Suspect]
     Active Substance: PREDNISONE
     Dosage: UNK
     Dates: end: 2020
  2. PREDNISONE [Suspect]
     Active Substance: PREDNISONE
     Dosage: UNK
     Dates: start: 2020
  3. PREDNISONE [Suspect]
     Active Substance: PREDNISONE
     Dosage: HIGHER DOSE

REACTIONS (3)
  - Drug ineffective [Recovered/Resolved]
  - Unevaluable event [Unknown]
  - Product substitution issue [Recovered/Resolved]

NARRATIVE: CASE EVENT DATE: 20200101
